FAERS Safety Report 23535372 (Version 1)
Quarter: 2024Q1

REPORT INFORMATION
  Report Type: Spontaneous
  Country: ES (occurrence: None)
  Receive Date: 20240218
  Receipt Date: 20240218
  Transmission Date: 20240410
  Serious: Yes (Other)
  Sender: FDA-Public Use
  Company Number: 2024A038689

PATIENT
  Age: 74 Year
  Sex: Male

DRUGS (2)
  1. OMEPRAZOLE [Suspect]
     Active Substance: OMEPRAZOLE
     Indication: Acid peptic disease
     Route: 048
     Dates: start: 20150115, end: 20231126
  2. OMEPRAZOLE [Suspect]
     Active Substance: OMEPRAZOLE
     Indication: Acid peptic disease
     Route: 048
     Dates: start: 20240118

REACTIONS (8)
  - Hypomagnesaemia [Recovered/Resolved]
  - Sepsis [Unknown]
  - Enterococcal infection [Unknown]
  - Acute kidney injury [Unknown]
  - Anaemia [Unknown]
  - Iron deficiency [Unknown]
  - Folate deficiency [Unknown]
  - Klebsiella infection [Unknown]

NARRATIVE: CASE EVENT DATE: 20231127
